FAERS Safety Report 6704853-3 (Version None)
Quarter: 2010Q2

REPORT INFORMATION
  Report Type: 
  Country: None (occurrence: None)
  Receive Date: 20100430
  Receipt Date: 20100212
  Transmission Date: 20101027
  Serious: No
  Sender: FDA-Public Use
  Company Number: US-ASTRAZENECA-2010SE06439

PATIENT
  Age: 60 Year
  Sex: Female

DRUGS (1)
  1. NEXIUM [Suspect]
     Route: 048
     Dates: start: 20091001

REACTIONS (4)
  - DRUG HYPERSENSITIVITY [None]
  - EYE SWELLING [None]
  - FACE INJURY [None]
  - HERPES ZOSTER [None]
